FAERS Safety Report 4366023-6 (Version None)
Quarter: 2004Q2

REPORT INFORMATION
  Report Type: 
  Country: None (occurrence: None)
  Receive Date: 20040527
  Receipt Date: 20040519
  Transmission Date: 20050107
  Serious: Yes (Life-Threatening, Hospitalization)
  Sender: FDA-Public Use
  Company Number: FR-BRISTOL-MYERS SQUIBB COMPANY-12596904

PATIENT
  Age: 59 Year

DRUGS (2)
  1. ERBITUX [Suspect]
     Indication: COLORECTAL CANCER
     Route: 041
  2. CAMPTOSAR [Suspect]
     Indication: COLORECTAL CANCER
     Route: 041

REACTIONS (3)
  - BRONCHOSPASM [None]
  - HYPOTENSION [None]
  - TACHYARRHYTHMIA [None]
